FAERS Safety Report 12628407 (Version 1)
Quarter: 2016Q3

REPORT INFORMATION
  Report Type: Spontaneous
  Country: US (occurrence: US)
  Receive Date: 20160808
  Receipt Date: 20160808
  Transmission Date: 20161109
  Serious: No
  Sender: FDA-Public Use
  Company Number: US-JAZZ-2016-US-004263

PATIENT
  Sex: Female

DRUGS (13)
  1. CLOMIPRAMINE HCL [Concomitant]
     Active Substance: CLOMIPRAMINE
  2. CALCIUM +D [Concomitant]
     Active Substance: CALCIUM\VITAMIN D
  3. MULTIVIT [Concomitant]
     Active Substance: VITAMINS
  4. XYREM [Suspect]
     Active Substance: SODIUM OXYBATE
     Indication: PRODUCT USED FOR UNKNOWN INDICATION
     Dosage: 3.75 G, BID
     Route: 048
     Dates: start: 200210
  5. SPIRONOLACTONE. [Concomitant]
     Active Substance: SPIRONOLACTONE
  6. LOSARTAN. [Concomitant]
     Active Substance: LOSARTAN
  7. CELEBREX [Concomitant]
     Active Substance: CELECOXIB
  8. ZOLPIDEM [Concomitant]
     Active Substance: ZOLPIDEM\ZOLPIDEM TARTRATE
  9. CELEBREX [Concomitant]
     Active Substance: CELECOXIB
  10. BONIVA [Concomitant]
     Active Substance: IBANDRONATE SODIUM
  11. NUVIGIL [Concomitant]
     Active Substance: ARMODAFINIL
  12. AMLODIPINE [Concomitant]
     Active Substance: AMLODIPINE BESYLATE
  13. PROVIGIL [Concomitant]
     Active Substance: MODAFINIL

REACTIONS (1)
  - Insomnia [Unknown]
